FAERS Safety Report 7156020-X (Version None)
Quarter: 2010Q4

REPORT INFORMATION
  Report Type: 
  Country: None (occurrence: None)
  Receive Date: 20101123
  Receipt Date: 20100813
  Transmission Date: 20110411
  Serious: Yes (Hospitalization)
  Sender: FDA-Public Use
  Company Number: 016041

PATIENT
  Sex: Female
  Weight: 68 kg

DRUGS (4)
  1. CIMZIA [Suspect]
     Indication: CROHN'S DISEASE
     Dosage: 200 MG 1X/MONTH SUBCUTANEOUS
     Route: 058
     Dates: start: 20080101
  2. CIMZIA [Suspect]
     Indication: CROHN'S DISEASE
     Dosage: 200 MG 1X/MONTH SUBCUTANEOUS
     Route: 058
     Dates: start: 20080929
  3. PROTONIX [Concomitant]
  4. LEXAPRO [Concomitant]

REACTIONS (1)
  - CROHN'S DISEASE [None]
